FAERS Safety Report 5116749-1 (Version None)
Quarter: 2006Q3

REPORT INFORMATION
  Report Type: 
  Country: None (occurrence: None)
  Receive Date: 20060925
  Receipt Date: 20060911
  Transmission Date: 20061208
  Serious: Yes (Hospitalization)
  Sender: FDA-Public Use
  Company Number: 2006112512

PATIENT
  Sex: Female

DRUGS (2)
  1. BEXTRA [Suspect]
     Dates: start: 20011201, end: 20050407
  2. VIOXX [Suspect]
     Dates: start: 20010101, end: 20011201

REACTIONS (1)
  - CEREBROVASCULAR ACCIDENT [None]
